FAERS Safety Report 23987208 (Version 1)
Quarter: 2024Q2

REPORT INFORMATION
  Report Type: Spontaneous
  Country: US (occurrence: None)
  Receive Date: 20240618
  Receipt Date: 20240618
  Transmission Date: 20240715
  Serious: No
  Sender: FDA-Public Use
  Company Number: None

PATIENT
  Age: 74 Year
  Sex: Female
  Weight: 63 kg

DRUGS (2)
  1. XDEMVY [Suspect]
     Active Substance: LOTILANER
     Indication: Blepharitis
     Dosage: 1 GTT DROP TWICE A DAY OPHTHALMIC
     Route: 047
     Dates: start: 20240427, end: 20240501
  2. XDEMVY [Suspect]
     Active Substance: LOTILANER
     Indication: Acariasis

REACTIONS (4)
  - Vision blurred [None]
  - Ocular discomfort [None]
  - Dyschromatopsia [None]
  - Therapy cessation [None]

NARRATIVE: CASE EVENT DATE: 20240502
